FAERS Safety Report 11794270 (Version 1)
Quarter: 2015Q4

REPORT INFORMATION
  Report Type: Spontaneous
  Country: US (occurrence: US)
  Receive Date: 20151202
  Receipt Date: 20151202
  Transmission Date: 20160305
  Serious: No
  Sender: FDA-Public Use
  Company Number: US-MISSION PHARMACAL COMPANY-1044928

PATIENT
  Age: 20 Year
  Sex: Male

DRUGS (2)
  1. POTASSIUM CITRATE. [Suspect]
     Active Substance: POTASSIUM CITRATE
     Route: 065
  2. THIOLA [Concomitant]
     Active Substance: TIOPRONIN
     Route: 048
     Dates: start: 20140930

REACTIONS (1)
  - Nephrolithiasis [Unknown]
